FAERS Safety Report 6276111-5 (Version None)
Quarter: 2009Q3

REPORT INFORMATION
  Report Type: 
  Country: None (occurrence: None)
  Receive Date: 20090717
  Receipt Date: 20090717
  Transmission Date: 20100115
  Serious: Yes (Hospitalization, Disabling)
  Sender: FDA-Public Use
  Company Number: None

PATIENT
  Sex: Female
  Weight: 71.2147 kg

DRUGS (1)
  1. TOPAMAX [Suspect]
     Dosage: 100 MG 1 DAY
     Dates: start: 20090614, end: 20090615

REACTIONS (5)
  - BURNING SENSATION [None]
  - NAUSEA [None]
  - PAIN [None]
  - SWELLING [None]
  - VISUAL ACUITY REDUCED [None]
